FAERS Safety Report 18193335 (Version 2)
Quarter: 2020Q3

REPORT INFORMATION
  Report Type: Spontaneous
  Country: US (occurrence: US)
  Receive Date: 20200825
  Receipt Date: 20200922
  Transmission Date: 20201103
  Serious: Yes (Hospitalization, Other)
  Sender: FDA-Public Use
  Company Number: US-MACLEODS PHARMACEUTICALS US LTD-MAC2020027750

PATIENT

DRUGS (2)
  1. ZIPRASIDONE 20 MG [Suspect]
     Active Substance: ZIPRASIDONE
     Indication: BIPOLAR I DISORDER
     Dosage: 20 MILLIGRAM, BID, EVERY 12 HOUR
     Route: 048
     Dates: start: 20181209, end: 20181215
  2. ZIPRASIDONE 20 MG [Suspect]
     Active Substance: ZIPRASIDONE
     Indication: HALLUCINATION, AUDITORY

REACTIONS (11)
  - Athetosis [Recovered/Resolved]
  - Hyperkinesia [Recovered/Resolved]
  - Dyskinesia [Recovered/Resolved]
  - Condition aggravated [Recovered/Resolved]
  - Blood albumin decreased [Recovered/Resolved]
  - Protrusion tongue [Recovering/Resolving]
  - Anaemia [Recovered/Resolved]
  - Hypernatraemia [Recovered/Resolved]
  - Tremor [Recovering/Resolving]
  - Dysphagia [Recovering/Resolving]
  - Akathisia [Recovered/Resolved]
